FAERS Safety Report 14500265 (Version 1)
Quarter: 2018Q1

REPORT INFORMATION
  Report Type: Spontaneous
  Country: FR (occurrence: FR)
  Receive Date: 20180207
  Receipt Date: 20180207
  Transmission Date: 20180509
  Serious: Yes (Life-Threatening, Other)
  Sender: FDA-Public Use
  Company Number: FR-MYLANLABS-2018M1007800

PATIENT
  Sex: Male

DRUGS (4)
  1. ATORVASTATIN [Suspect]
     Active Substance: ATORVASTATIN
     Indication: PRODUCT USED FOR UNKNOWN INDICATION
  2. LISINOPRIL/HYDROKLORTIAZID MYLAN [Suspect]
     Active Substance: HYDROCHLOROTHIAZIDE\LISINOPRIL
     Indication: PRODUCT USED FOR UNKNOWN INDICATION
     Route: 048
  3. GINKGO BILOBA [Suspect]
     Active Substance: GINKGO
     Indication: PRODUCT USED FOR UNKNOWN INDICATION
  4. ROFECOXIB [Suspect]
     Active Substance: ROFECOXIB
     Indication: PRODUCT USED FOR UNKNOWN INDICATION

REACTIONS (1)
  - Acquired haemophilia [Unknown]
